FAERS Safety Report 21578839 (Version 1)
Quarter: 2022Q4

REPORT INFORMATION
  Report Type: Spontaneous
  Country: IT (occurrence: IT)
  Receive Date: 20221110
  Receipt Date: 20221110
  Transmission Date: 20230113
  Serious: Yes (Other)
  Sender: FDA-Public Use
  Company Number: IT-ASPEN-GLO2022IT006472

PATIENT
  Age: 34 Year
  Sex: Female

DRUGS (12)
  1. CYTARABINE [Suspect]
     Active Substance: CYTARABINE
     Indication: Diffuse large B-cell lymphoma stage IV
     Dosage: 400 MG/M2, QD (?5 TO ?2)
     Route: 065
  2. CYTARABINE [Suspect]
     Active Substance: CYTARABINE
     Indication: Stem cell transplant
  3. CYTARABINE [Suspect]
     Active Substance: CYTARABINE
     Indication: Bone marrow conditioning regimen
  4. MELPHALAN [Suspect]
     Active Substance: MELPHALAN
     Indication: Bone marrow conditioning regimen
     Dosage: FREQ:{TOTAL};140 MG/M2, 1 DOSAGE TOTAL
     Route: 065
  5. MELPHALAN [Suspect]
     Active Substance: MELPHALAN
     Indication: Diffuse large B-cell lymphoma stage IV
  6. MELPHALAN [Suspect]
     Active Substance: MELPHALAN
     Indication: Stem cell transplant
  7. ETOPOSIDE [Suspect]
     Active Substance: ETOPOSIDE
     Indication: Stem cell transplant
     Dosage: 200 MG/M2, QD (?5 TO ?2)
     Route: 065
  8. ETOPOSIDE [Suspect]
     Active Substance: ETOPOSIDE
     Indication: Bone marrow conditioning regimen
  9. ETOPOSIDE [Suspect]
     Active Substance: ETOPOSIDE
     Indication: Diffuse large B-cell lymphoma stage IV
  10. FOTEMUSTINE [Suspect]
     Active Substance: FOTEMUSTINE
     Indication: Stem cell transplant
     Dosage: 150 MG/M2, QD
     Route: 065
  11. FOTEMUSTINE [Suspect]
     Active Substance: FOTEMUSTINE
     Indication: Diffuse large B-cell lymphoma stage IV
  12. FOTEMUSTINE [Suspect]
     Active Substance: FOTEMUSTINE
     Indication: Bone marrow conditioning regimen

REACTIONS (2)
  - Cytopenia [Recovered/Resolved]
  - Infection [Unknown]
